FAERS Safety Report 4276959-2 (Version None)
Quarter: 2004Q1

REPORT INFORMATION
  Report Type: 
  Country: None (occurrence: None)
  Receive Date: 20040120
  Receipt Date: 20040108
  Transmission Date: 20041129
  Serious: Yes (Life-Threatening, Hospitalization)
  Sender: FDA-Public Use
  Company Number: US-JNJFOC-20040101767

PATIENT
  Age: 46 Year
  Sex: Female
  Weight: 53.5244 kg

DRUGS (8)
  1. REMICADE [Suspect]
     Indication: CROHN'S DISEASE
     Dosage: 400 MG, INTRAVENOUS
     Route: 042
     Dates: start: 20031210
  2. TYLENOL W/ CODEINE NO. 3 [Concomitant]
  3. EFFEXOR [Concomitant]
  4. ACTIVELLA (OESTRANORM) [Concomitant]
  5. CALTRATE (CALCIUM CARBONATE) [Concomitant]
  6. FOLIC ACID [Concomitant]
  7. DOPAMINE HCL [Concomitant]
  8. VANCOMYCIN [Concomitant]

REACTIONS (2)
  - PNEUMONIA VIRAL [None]
  - SEPSIS [None]
